FAERS Safety Report 9945339 (Version 1)
Quarter: 2014Q1

REPORT INFORMATION
  Report Type: Report from Study
  Country: US (occurrence: US)
  Receive Date: 20140303
  Receipt Date: 20140303
  Transmission Date: 20141002
  Serious: No
  Sender: FDA-Public Use
  Company Number: US-ABBVIE-13P-163-1053664-00

PATIENT
  Age: 31 Year
  Sex: Female

DRUGS (11)
  1. HUMIRA [Suspect]
     Indication: COLITIS ULCERATIVE
     Dates: start: 201210, end: 201211
  2. HUMIRA [Suspect]
     Dates: start: 201211
  3. LO SEASONIQUE BIRTH CONTROL PILL [Concomitant]
     Indication: PRODUCT USED FOR UNKNOWN INDICATION
     Dosage: DAILY
  4. CLOMIPRAMINE [Concomitant]
     Indication: OBSESSIVE-COMPULSIVE DISORDER
     Dosage: AT NIGHT
  5. HYDROXYZINE [Concomitant]
     Indication: URTICARIA
     Dosage: 30 MG DAILY
  6. ADDERALL [Concomitant]
     Indication: ATTENTION DEFICIT/HYPERACTIVITY DISORDER
     Dosage: 50 MG DAILY
  7. VYVANSE [Concomitant]
     Indication: ATTENTION DEFICIT/HYPERACTIVITY DISORDER
     Dosage: 70 MG DAILY
  8. INTEGRA [Concomitant]
     Indication: BLOOD IRON
     Dosage: 50 MG DAILY
  9. IRON [Concomitant]
     Indication: IRON DEFICIENCY
     Dosage: DAILY
  10. CALCIUM [Concomitant]
     Indication: CALCIUM DEFICIENCY
     Dosage: DAILY
  11. POTASSIUM [Concomitant]
     Indication: HYPOKALAEMIA
     Dosage: DAILY

REACTIONS (2)
  - Nasopharyngitis [Not Recovered/Not Resolved]
  - Drug ineffective [Not Recovered/Not Resolved]
